FAERS Safety Report 18793190 (Version 1)
Quarter: 2021Q1

REPORT INFORMATION
  Report Type: Spontaneous
  Country: GB (occurrence: GB)
  Receive Date: 20210127
  Receipt Date: 20210127
  Transmission Date: 20210419
  Serious: Yes (Death, Other)
  Sender: FDA-Public Use
  Company Number: GB-PFIZER INC-2021066298

PATIENT
  Sex: Male

DRUGS (14)
  1. CO?CARELDOPA [Suspect]
     Active Substance: CARBIDOPA\LEVODOPA
     Dosage: 1 DF, 4X/DAY (FREQ:6 H;25/100 MG AND 12.5/50 MG (AT 8 AM, 12 PM,4 PM, 8 PM))
  2. COLECALCIFEROL [Suspect]
     Active Substance: CHOLECALCIFEROL
     Dosage: 800 IU, 1X/DAY (FREQ:24 H;800 UNITS, 1X / DAY)
  3. COCODAMOL [Suspect]
     Active Substance: ACETAMINOPHEN\CODEINE PHOSPHATE
     Dosage: 2 DF, AS NEEDED (2 DF, 15MG/500MG, 2 TABLETS EVERY 6 HRS  AS REQUIRED)
  4. LEVOTHYROXINE SODIUM. [Suspect]
     Active Substance: LEVOTHYROXINE SODIUM
     Dosage: 50 UG, 1X/DAY (50 UG, FREQ:24 H;50 MICROGRAM, 1X / DAY)
  5. TAMSULOSIN [Suspect]
     Active Substance: TAMSULOSIN
     Dosage: 400 UG, 1X/DAY (400 UG, FREQ:24 H;400 MICROGRAM, 1X / DAY )
  6. ALLOPURINOL. [Suspect]
     Active Substance: ALLOPURINOL
     Dosage: 300 MG, 1X/DAY (FREQ:24 H;300 MILLIGRAM, 1X / DAY)
  7. ONGENTYS [Suspect]
     Active Substance: OPICAPONE
     Indication: PARKINSON^S DISEASE
     Dosage: 50 MG, 1X/DAY (FREQ:24 H;50 MILLIGRAM (30 MINS PRE/POST EVENING LEVODOPA)
     Dates: start: 2020
  8. ADCAL D3 [Suspect]
     Active Substance: CALCIUM CARBONATE\CHOLECALCIFEROL
     Dosage: 1 DF, 2X/DAY (1 DF, FREQ:12 H;1.5 G + 400 UNITS, 2X / DAY)
  9. LEVOTHYROXINE SODIUM. [Suspect]
     Active Substance: LEVOTHYROXINE SODIUM
     Dosage: 25 UG, 1X/DAY (25 UG, FREQ:24 H;25 MICROGRAM, 1X / DAY)
  10. GABAPENTIN. [Suspect]
     Active Substance: GABAPENTIN
     Dosage: 600 MG, 3X/DAY
  11. LAXIDO [Suspect]
     Active Substance: POLYETHYLENE GLYCOL 3350\POTASSIUM CHLORIDE\SODIUM BICARBONATE\SODIUM CHLORIDE
     Dosage: 1 DF, 2X/DAY (1 DF, FREQ:12 H; UNKNOWN, 2X / DAY)
  12. MIRTAZAPINE. [Suspect]
     Active Substance: MIRTAZAPINE
     Dosage: 15 MG, 1X/DAY (FREQ:24 H;15 MILLIGRAM, 1X /DAY)
  13. SENNA [SENNA ALEXANDRINA] [Suspect]
     Active Substance: SENNA LEAF
     Dosage: 7.5 MG, 1X/DAY (FREQ:24 H;7.5 MILLIGRAM, 1X / DAY )
  14. ENTACAPONE. [Suspect]
     Active Substance: ENTACAPONE
     Dosage: UNK

REACTIONS (11)
  - Urinary retention [Recovered/Resolved]
  - Hyponatraemia [Recovered/Resolved]
  - Confusional state [Recovered/Resolved]
  - Agitation [Recovered/Resolved]
  - Joint dislocation [Unknown]
  - Orthostatic hypotension [Unknown]
  - Dyskinesia [Unknown]
  - Fall [Unknown]
  - Treatment noncompliance [Unknown]
  - Death [Fatal]
  - Upper limb fracture [Unknown]

NARRATIVE: CASE EVENT DATE: 2020
